FAERS Safety Report 24645814 (Version 3)
Quarter: 2025Q3

REPORT INFORMATION
  Report Type: Spontaneous
  Country: JP (occurrence: JP)
  Receive Date: 20241121
  Receipt Date: 20250803
  Transmission Date: 20251021
  Serious: Yes (Death, Other)
  Sender: ALEXION PHARMACEUTICALS
  Company Number: JP-ASTRAZENECA-240129514_064320_P_1

PATIENT
  Age: 77 Year
  Sex: Male

DRUGS (4)
  1. ANDEXXA [Suspect]
     Active Substance: ANDEXANET ALFA
     Indication: Subarachnoid haemorrhage
     Dates: start: 20221121, end: 20221121
  2. ANDEXXA [Suspect]
     Active Substance: ANDEXANET ALFA
  3. XARELTO [Concomitant]
     Active Substance: RIVAROXABAN
     Indication: Atrial fibrillation
  4. XARELTO [Concomitant]
     Active Substance: RIVAROXABAN

REACTIONS (4)
  - Intestinal ischaemia [Fatal]
  - Cerebellar infarction [Unknown]
  - Brain stem infarction [Unknown]
  - Dehydration [Unknown]

NARRATIVE: CASE EVENT DATE: 20220101
